FAERS Safety Report 25153576 (Version 1)
Quarter: 2025Q2

REPORT INFORMATION
  Report Type: Spontaneous
  Country: TR (occurrence: TR)
  Receive Date: 20250403
  Receipt Date: 20250403
  Transmission Date: 20250717
  Serious: Yes (Other)
  Sender: ACCORD
  Company Number: TR-MLMSERVICE-20250317-PI448855-00117-1

PATIENT
  Age: 45 Year
  Sex: Male

DRUGS (15)
  1. TEMOZOLOMIDE [Suspect]
     Active Substance: TEMOZOLOMIDE
     Indication: High-grade B-cell lymphoma
     Dosage: 21-DAY CYCLE OF 150 MG/M2/DAY ON DAYS 2-5
     Route: 048
  2. ETOPOSIDE [Suspect]
     Active Substance: ETOPOSIDE
     Indication: High-grade B-cell lymphoma
     Dosage: 21-DAY CYCLE OF 50 MG/M2/DAY ON DAYS 2-5
     Route: 042
  3. CYTARABINE [Suspect]
     Active Substance: CYTARABINE
     Indication: High-grade B-cell lymphoma
     Route: 037
  4. DEXAMETHASONE [Suspect]
     Active Substance: DEXAMETHASONE
     Indication: High-grade B-cell lymphoma
     Dosage: 21-DAY CYCLE OF 10 MG/M2/ BID ON DAYS 1-5
     Route: 042
  5. DOXORUBICIN [Suspect]
     Active Substance: DOXORUBICIN
     Indication: High-grade B-cell lymphoma
     Dosage: 21-DAY CYCLE OF 50 MG/M2 ON DAY 2
     Route: 042
  6. IBRUTINIB [Suspect]
     Active Substance: IBRUTINIB
     Indication: High-grade B-cell lymphoma
     Dosage: IBRUTINIB 560 MG ALONE WITHIN A  14-DAY WINDOW
     Route: 048
  7. RITUXIMAB [Suspect]
     Active Substance: RITUXIMAB
     Indication: High-grade B-cell lymphoma
     Dosage: 21-DAY CYCLE OF 375 MG/M2/DAY ON DAYS 1-2
     Route: 042
  8. POSACONAZOLE [Concomitant]
     Active Substance: POSACONAZOLE
     Indication: Antifungal prophylaxis
  9. DEXAMETHASONE [Suspect]
     Active Substance: DEXAMETHASONE
     Indication: Central nervous system lymphoma
     Dosage: 21-DAY CYCLE OF 10 MG/M2/ BID ON DAYS 1-5
     Route: 042
  10. IBRUTINIB [Suspect]
     Active Substance: IBRUTINIB
     Indication: Central nervous system lymphoma
     Route: 048
  11. DOXORUBICIN [Suspect]
     Active Substance: DOXORUBICIN
     Indication: Central nervous system lymphoma
     Dosage: 21-DAY CYCLE OF 50 MG/M2 ON DAY 2
     Route: 042
  12. CYTARABINE [Suspect]
     Active Substance: CYTARABINE
     Indication: Central nervous system lymphoma
     Route: 037
  13. RITUXIMAB [Suspect]
     Active Substance: RITUXIMAB
     Indication: Central nervous system lymphoma
     Dosage: 21-DAY CYCLE OF 375 MG/M2/DAY ON DAYS 1-2
     Route: 042
  14. TEMOZOLOMIDE [Suspect]
     Active Substance: TEMOZOLOMIDE
     Indication: Central nervous system lymphoma
     Dosage: 21-DAY CYCLE OF 150 MG/M2/DAY ON DAYS 2-5
     Route: 048
  15. ETOPOSIDE [Suspect]
     Active Substance: ETOPOSIDE
     Indication: Central nervous system lymphoma
     Dosage: 21-DAY CYCLE OF 50 MG/M2/DAY ON DAYS 2-5
     Route: 042

REACTIONS (1)
  - Febrile neutropenia [Unknown]
